FAERS Safety Report 12787876 (Version 1)
Quarter: 2016Q3

REPORT INFORMATION
  Report Type: Spontaneous
  Country: NL (occurrence: NL)
  Receive Date: 20160928
  Receipt Date: 20160928
  Transmission Date: 20161109
  Serious: No
  Sender: FDA-Public Use
  Company Number: NL-TOLMAR, INC.-2015NL007096

PATIENT
  Age: 75 Year
  Sex: Male

DRUGS (1)
  1. ELIGARD [Suspect]
     Active Substance: LEUPROLIDE ACETATE
     Indication: PROSTATE CANCER
     Dosage: UNK, ONCE EVERY 3 MONTHS
     Route: 065

REACTIONS (7)
  - Injection site swelling [Unknown]
  - Hypoaesthesia [Unknown]
  - Pain [Unknown]
  - Injection site pain [Unknown]
  - Nipple pain [Unknown]
  - Injection site haematoma [Unknown]
  - Arthralgia [Unknown]

NARRATIVE: CASE EVENT DATE: 20150716
